FAERS Safety Report 22109518 (Version 1)
Quarter: 2023Q1

REPORT INFORMATION
  Report Type: Spontaneous
  Country: DE (occurrence: DE)
  Receive Date: 20230317
  Receipt Date: 20230317
  Transmission Date: 20230418
  Serious: Yes (Other)
  Sender: FDA-Public Use
  Company Number: DE-BAXTER-2023BAX015379

PATIENT
  Age: 37 Year
  Sex: Female

DRUGS (3)
  1. CYCLOPHOSPHAMIDE [Suspect]
     Active Substance: CYCLOPHOSPHAMIDE
     Indication: Lupus nephritis
     Dosage: UNK (IN 2004)
     Route: 065
  2. CYCLOPHOSPHAMIDE [Suspect]
     Active Substance: CYCLOPHOSPHAMIDE
     Indication: Systemic lupus erythematosus
     Dosage: TWO WEEK INFUSIONS
     Route: 065
     Dates: start: 20230308
  3. MESNA [Suspect]
     Active Substance: MESNA
     Dosage: UNK
     Route: 065

REACTIONS (3)
  - Ileus [Recovered/Resolved]
  - Gastrointestinal perforation [Recovered/Resolved]
  - Drug hypersensitivity [Unknown]
